FAERS Safety Report 12996016 (Version 5)
Quarter: 2022Q1

REPORT INFORMATION
  Report Type: Spontaneous
  Country: FR (occurrence: FR)
  Receive Date: 20161202
  Receipt Date: 20220302
  Transmission Date: 20220424
  Serious: Yes (Hospitalization, Congenital Anomaly, Other)
  Sender: FDA-Public Use
  Company Number: FR-ABBVIE-16P-056-1577380-00

PATIENT
  Sex: Female

DRUGS (2)
  1. VALPROATE SODIUM [Suspect]
     Active Substance: VALPROATE SODIUM
     Indication: Product used for unknown indication
     Dosage: 3 DF, QD
     Route: 065
     Dates: start: 200502, end: 20051013
  2. FOLIC ACID [Concomitant]
     Active Substance: FOLIC ACID
     Indication: Product used for unknown indication
     Route: 065

REACTIONS (38)
  - Pulmonary embolism [Unknown]
  - Respiratory distress [Unknown]
  - Bronchopneumopathy [Unknown]
  - Premature labour [Unknown]
  - Exposure during pregnancy [Unknown]
  - Twin pregnancy [Unknown]
  - Live birth [Unknown]
  - Live birth [Unknown]
  - Ear, nose and throat infection [Unknown]
  - Malaise [Unknown]
  - Disability [Unknown]
  - Foetal anticonvulsant syndrome [Unknown]
  - Congenital anomaly [Not Recovered/Not Resolved]
  - Language disorder [Not Recovered/Not Resolved]
  - Behaviour disorder [Not Recovered/Not Resolved]
  - Cognitive disorder [Not Recovered/Not Resolved]
  - Disturbance in attention [Not Recovered/Not Resolved]
  - Visual impairment [Not Recovered/Not Resolved]
  - Psychomotor skills impaired [Not Recovered/Not Resolved]
  - Respiratory distress [Recovered/Resolved]
  - Neurodevelopmental disorder [Unknown]
  - Astigmatism [Unknown]
  - Lordosis [Unknown]
  - Hypermobility syndrome [Unknown]
  - Intellectual disability [Unknown]
  - Visuospatial deficit [Unknown]
  - Learning disability [Unknown]
  - Congenital cardiovascular anomaly [Unknown]
  - Dysmorphism [Unknown]
  - Psychomotor retardation [Unknown]
  - Hypotonia [Unknown]
  - Developmental hip dysplasia [Unknown]
  - Scoliosis [Not Recovered/Not Resolved]
  - Hyperplasia adrenal [Unknown]
  - Myopia [Not Recovered/Not Resolved]
  - Ear infection [Recovered/Resolved]
  - Laryngitis [Recovered/Resolved]
  - Enuresis [Unknown]

NARRATIVE: CASE EVENT DATE: 20050924
